FAERS Safety Report 6759795-4 (Version None)
Quarter: 2010Q2

REPORT INFORMATION
  Report Type: 
  Country: None (occurrence: None)
  Receive Date: 20100608
  Receipt Date: 20100602
  Transmission Date: 20101027
  Serious: No
  Sender: FDA-Public Use
  Company Number: US-JNJFOC-20100601246

PATIENT
  Sex: Female

DRUGS (5)
  1. SANDOZ FENTANYL TRANSDERMAL SYSTEM [Suspect]
     Indication: BACK PAIN
     Route: 062
  2. SANDOZ FENTANYL TRANSDERMAL SYSTEM [Suspect]
     Route: 062
  3. MICARDIS [Concomitant]
     Indication: HYPERTENSION
     Dosage: 80/20 MG
     Route: 048
  4. CARDIZEM [Concomitant]
     Indication: HEART RATE IRREGULAR
     Route: 048
  5. KLONOPIN [Concomitant]
     Indication: SLEEP DISORDER
     Route: 048

REACTIONS (3)
  - DRUG INEFFECTIVE [None]
  - NAUSEA [None]
  - TREATMENT NONCOMPLIANCE [None]
